FAERS Safety Report 5775958-9 (Version None)
Quarter: 2008Q2

REPORT INFORMATION
  Report Type: 
  Country: None (occurrence: None)
  Receive Date: 20080613
  Receipt Date: 20080528
  Transmission Date: 20081010
  Serious: Yes (Other)
  Sender: FDA-Public Use
  Company Number: DSA_31917_2008

PATIENT
  Sex: Female
  Weight: 63.5036 kg

DRUGS (5)
  1. ATIVAN [Suspect]
     Indication: INSOMNIA
     Dosage: DF EVERY EVEINIG AS NECESSARY ORAL
     Route: 048
     Dates: start: 20080101
  2. FENTANYL CITRATE [Suspect]
     Indication: PANCREATIC CARCINOMA
     Dosage: 1200 ?G PRN BUCCAL), 800 ?G PRN BUCAL
     Route: 002
     Dates: start: 20080101
  3. FENTANYL CITRATE [Suspect]
     Indication: PANCREATIC CARCINOMA
     Dosage: 1200 ?G PRN BUCCAL), 800 ?G PRN BUCAL
     Route: 002
     Dates: start: 20080408
  4. ACTIQ [Concomitant]
  5. CREON [Concomitant]

REACTIONS (7)
  - DRUG INTERACTION [None]
  - DYSPNOEA [None]
  - FATIGUE [None]
  - HYPERHIDROSIS [None]
  - PALPITATIONS [None]
  - REACTION TO DRUG EXCIPIENTS [None]
  - TREMOR [None]
